FAERS Safety Report 14347172 (Version 3)
Quarter: 2018Q2

REPORT INFORMATION
  Report Type: Spontaneous
  Country: US (occurrence: US)
  Receive Date: 20180103
  Receipt Date: 20180419
  Transmission Date: 20180711
  Serious: No
  Sender: FDA-Public Use
  Company Number: US-PFIZER INC-2017555276

PATIENT
  Age: 49 Year
  Sex: Male
  Weight: 117.93 kg

DRUGS (5)
  1. LYRICA [Suspect]
     Active Substance: PREGABALIN
     Indication: NECK PAIN
     Dosage: 100 MG, 2X/DAY
     Route: 048
     Dates: start: 2015
  2. LYRICA [Suspect]
     Active Substance: PREGABALIN
     Indication: HEADACHE
     Dosage: 150 MG, 2X/DAY
     Dates: start: 201602
  3. LYRICA [Suspect]
     Active Substance: PREGABALIN
     Indication: ARTHRALGIA
  4. CYMBALTA [Suspect]
     Active Substance: DULOXETINE HYDROCHLORIDE
     Dosage: 90 MG, 1X/DAY (30MG CAPSULE AND 60MG CAPSULE FOR TOTAL DOSE OF 90MG BY MOUTH ONCE DAILY IN THE MORN)
     Route: 048
     Dates: start: 201512
  5. CYMBALTA [Suspect]
     Active Substance: DULOXETINE HYDROCHLORIDE
     Indication: ARTHRALGIA
     Dosage: 90 MG, 1X/DAY (30MG CAPSULE AND 60MG CAPSULE FOR TOTAL DOSE OF 90MG BY MOUTH ONCE DAILY IN THE MORN)
     Route: 048
     Dates: start: 201512

REACTIONS (4)
  - Condition aggravated [Not Recovered/Not Resolved]
  - Stenosis [Not Recovered/Not Resolved]
  - Drug ineffective for unapproved indication [Not Recovered/Not Resolved]
  - Migraine [Not Recovered/Not Resolved]

NARRATIVE: CASE EVENT DATE: 20171222
